FAERS Safety Report 7138689-9 (Version None)
Quarter: 2010Q4

REPORT INFORMATION
  Report Type: 
  Country: None (occurrence: None)
  Receive Date: 20101122
  Receipt Date: 20101103
  Transmission Date: 20110411
  Serious: Yes (Other)
  Sender: FDA-Public Use
  Company Number: 2010P1002389

PATIENT
  Age: 80 Year
  Sex: Male
  Weight: 81.6475 kg

DRUGS (16)
  1. WARFARIN SODIUM [Suspect]
     Indication: THROMBOSIS
     Dosage: (7.5MG; MON-THURS-FRI-SAT; PO) (5 MG; TUE-WED-SUN; PO)
     Route: 048
     Dates: start: 20070101, end: 20101025
  2. WARFARIN SODIUM [Suspect]
     Indication: THROMBOSIS
     Dosage: (7.5MG; MON-THURS-FRI-SAT; PO) (5 MG; TUE-WED-SUN; PO)
     Route: 048
     Dates: start: 20070101, end: 20101025
  3. ASPIRIN [Concomitant]
  4. METFORMIN [Concomitant]
  5. TERAZOSIN HCL [Concomitant]
  6. SIMVASTATIN [Concomitant]
  7. LISINOPRIL AND HYDROCHLOROTHIAZIDE [Concomitant]
  8. METOPROLOL 50 MG [Concomitant]
  9. NITROGLYCERIN [Concomitant]
  10. OMEPRAZOLE [Concomitant]
  11. FINASTERIDE [Concomitant]
  12. LONOX [Concomitant]
  13. PRESERVATION [Concomitant]
  14. CENTRUM SILVER [Concomitant]
  15. LUTEIN [Concomitant]
  16. SAW PALMETTO [Concomitant]

REACTIONS (3)
  - DRUG LEVEL DECREASED [None]
  - INTERNATIONAL NORMALISED RATIO DECREASED [None]
  - PRODUCT QUALITY ISSUE [None]
